FAERS Safety Report 4721639-X (Version None)
Quarter: 2005Q3

REPORT INFORMATION
  Report Type: 
  Country: None (occurrence: None)
  Receive Date: 20050721
  Receipt Date: 20050131
  Transmission Date: 20060218
  Serious: Yes (Other)
  Sender: FDA-Public Use
  Company Number: US-BRISTOL-MYERS SQUIBB COMPANY-12843215

PATIENT
  Age: 66 Year
  Sex: Female

DRUGS (5)
  1. COUMADIN [Suspect]
     Indication: MITRAL VALVE STENOSIS
     Route: 048
     Dates: start: 20040101, end: 20050101
  2. COUMADIN [Suspect]
     Route: 048
     Dates: start: 20040101, end: 20050101
  3. COUMADIN [Suspect]
     Route: 048
     Dates: start: 20040101, end: 20050101
  4. COUMADIN [Suspect]
     Route: 048
     Dates: start: 20040101, end: 20050101
  5. OTHERS (NOS) [Concomitant]

REACTIONS (1)
  - HAEMATOMA [None]
